FAERS Safety Report 24002544 (Version 1)
Quarter: 2024Q2

REPORT INFORMATION
  Report Type: Spontaneous
  Country: JP (occurrence: JP)
  Receive Date: 20240623
  Receipt Date: 20240623
  Transmission Date: 20240715
  Serious: Yes (Other)
  Sender: FDA-Public Use
  Company Number: JP-002147023-NVSJ2024JP005769

PATIENT
  Age: 76 Year
  Sex: Male

DRUGS (1)
  1. BEOVU [Suspect]
     Active Substance: BROLUCIZUMAB-DBLL
     Indication: Age-related macular degeneration
     Dosage: 6 MG
     Route: 031
     Dates: start: 20240216, end: 20240216

REACTIONS (4)
  - Anterior chamber inflammation [Recovered/Resolved]
  - Keratic precipitates [Recovered/Resolved]
  - Retinal vasculitis [Recovered/Resolved]
  - Cataract operation complication [Recovered/Resolved]

NARRATIVE: CASE EVENT DATE: 20240315
